FAERS Safety Report 4885346-5 (Version None)
Quarter: 2005Q4

REPORT INFORMATION
  Report Type: 
  Country: None (occurrence: None)
  Receive Date: 20051223
  Receipt Date: 20050929
  Transmission Date: 20060501
  Serious: Yes (Hospitalization)
  Sender: FDA-Public Use
  Company Number: USA021225311

PATIENT
  Age: 64 Year
  Sex: Male
  Weight: 86 kg

DRUGS (3)
  1. HUMALOG [Suspect]
     Indication: DIABETES MELLITUS
  2. HUMULIN N [Suspect]
     Indication: DIABETES MELLITUS
     Dosage: 30 U/DAY
  3. HUMULIN R [Suspect]
     Indication: DIABETES MELLITUS
     Dosage: 14 U/DAY

REACTIONS (3)
  - BLOOD GLUCOSE INCREASED [None]
  - HYPOGLYCAEMIA [None]
  - WEIGHT INCREASED [None]
